FAERS Safety Report 17653884 (Version 1)
Quarter: 2020Q2

REPORT INFORMATION
  Report Type: Spontaneous
  Country: SE (occurrence: SE)
  Receive Date: 20200409
  Receipt Date: 20200409
  Transmission Date: 20200713
  Serious: Yes (Other)
  Sender: FDA-Public Use
  Company Number: SE-CANTON LABORATORIES, LLC-2082600

PATIENT
  Age: 49 Year
  Sex: Female

DRUGS (29)
  1. PROPAVAN [Suspect]
     Active Substance: PROPIOMAZINE
     Route: 065
  2. STILNOCT [Suspect]
     Active Substance: ZOLPIDEM TARTRATE
     Route: 065
  3. VITAMIN D [Suspect]
     Active Substance: VITAMIN D NOS
     Route: 065
  4. INOLAXOL [Suspect]
     Active Substance: HERBALS\KARAYA GUM
     Route: 065
  5. TREO COMP BRUSTABLETTER (ACETYLSALICYLIC ACID\CODEINE\CAFFEINE) [Suspect]
     Active Substance: ASPIRIN\CAFFEINE\CODEINE
     Route: 065
  6. DIPROSALIC [Suspect]
     Active Substance: BETAMETHASONE DIPROPIONATE
     Route: 065
  7. ENALAPRIL [Suspect]
     Active Substance: ENALAPRIL
     Route: 065
  8. FOLATE SODIUM [Suspect]
     Active Substance: FOLATE SODIUM
     Route: 065
  9. OMEPRAZOLE. [Suspect]
     Active Substance: OMEPRAZOLE
     Route: 065
  10. LYRICA [Concomitant]
     Active Substance: PREGABALIN
     Route: 065
  11. CYANOCOBALAMIN. [Suspect]
     Active Substance: CYANOCOBALAMIN
     Route: 065
  12. FERINJECT [Suspect]
     Active Substance: FERRIC CARBOXYMALTOSE
     Route: 065
  13. NAPROSYN [Suspect]
     Active Substance: NAPROXEN
     Indication: PRODUCT USED FOR UNKNOWN INDICATION
     Route: 065
  14. DESOGESTREL [Suspect]
     Active Substance: DESOGESTREL
     Route: 065
  15. DULOXETINE. [Suspect]
     Active Substance: DULOXETINE
     Route: 065
  16. METOPROLOL. [Suspect]
     Active Substance: METOPROLOL
     Route: 065
  17. AIMOVIG [Suspect]
     Active Substance: ERENUMAB-AOOE
     Route: 065
  18. SUMATRIPTAN. [Suspect]
     Active Substance: SUMATRIPTAN
     Route: 065
  19. IPREN [Suspect]
     Active Substance: IBUPROFEN
     Route: 065
  20. LIOTHYRONINE SODIUM. [Suspect]
     Active Substance: LIOTHYRONINE SODIUM
     Route: 065
  21. MELATONIN [Suspect]
     Active Substance: MELATONIN
     Route: 065
  22. OMEGA 3 [Suspect]
     Active Substance: OMEGA-3 FATTY ACIDS
     Route: 065
  23. NITRAZEPAM [Suspect]
     Active Substance: NITRAZEPAM
     Route: 065
  24. ASCORBIC ACID. [Suspect]
     Active Substance: ASCORBIC ACID
     Route: 065
  25. ALVEDON [Suspect]
     Active Substance: ACETAMINOPHEN
     Route: 065
  26. LEVAXIN [Suspect]
     Active Substance: LEVOTHYROXINE SODIUM
     Route: 065
  27. TREO [Suspect]
     Active Substance: ASPIRIN\CAFFEINE
     Route: 065
  28. UBIDECARENONE [Suspect]
     Active Substance: UBIDECARENONE
     Route: 065
  29. SAROTEN [Concomitant]
     Active Substance: AMITRIPTYLINE
     Route: 065

REACTIONS (6)
  - Wrong technique in product usage process [Unknown]
  - Thyroid gland injury [Unknown]
  - Off label use [Unknown]
  - Weight increased [Unknown]
  - Hypertension [Unknown]
  - Incorrect product administration duration [Unknown]
